FAERS Safety Report 6381467-9 (Version None)
Quarter: 2009Q3

REPORT INFORMATION
  Report Type: 
  Country: None (occurrence: None)
  Receive Date: 20090929
  Receipt Date: 20081103
  Transmission Date: 20100115
  Serious: No
  Sender: FDA-Public Use
  Company Number: US-ALLERGAN-0812683US

PATIENT
  Age: 76 Year
  Sex: Male
  Weight: 98.413 kg

DRUGS (4)
  1. BLEPHAMIDE [Suspect]
     Indication: EYE DISCHARGE
     Dosage: 2 GTT, TID
     Route: 047
     Dates: start: 20080717
  2. BLEPHAMIDE [Suspect]
     Indication: LACRIMATION INCREASED
  3. PATANOL [Suspect]
     Indication: LACRIMATION INCREASED
     Dosage: 2 GTT, TID
     Route: 047
  4. PATANOL [Suspect]
     Indication: EYE DISCHARGE

REACTIONS (1)
  - DRUG INEFFECTIVE [None]
